FAERS Safety Report 11259451 (Version 3)
Quarter: 2016Q2

REPORT INFORMATION
  Report Type: Spontaneous
  Country: BR (occurrence: BR)
  Receive Date: 20150710
  Receipt Date: 20160421
  Transmission Date: 20160815
  Serious: Yes (Other)
  Sender: FDA-Public Use
  Company Number: BR-PFIZER INC-2015225385

PATIENT
  Age: 67 Year
  Sex: Female
  Weight: 80 kg

DRUGS (12)
  1. CELEBRA [Suspect]
     Active Substance: CELECOXIB
     Indication: TRAUMATIC FRACTURE
     Dosage: 200 MG, DAILY
     Dates: start: 20150704, end: 201507
  2. CALTRATE [Concomitant]
     Active Substance: CALCIUM CARBONATE
     Indication: OSTEOPOROSIS
     Dosage: 1 DF, 1 TABLET A DAY
  3. NATRILIX SR [Concomitant]
     Active Substance: INDAPAMIDE
     Indication: BLOOD PRESSURE MEASUREMENT
     Dosage: 1 TABLET, UNK
     Dates: start: 1999
  4. RUSOVAS [Concomitant]
     Active Substance: ROSUVASTATIN
     Dosage: UNK
     Dates: start: 1999
  5. VITAMIN E [Concomitant]
     Active Substance: .ALPHA.-TOCOPHEROL
     Dosage: UNK
  6. TOFRANIL [Concomitant]
     Active Substance: IMIPRAMINE HYDROCHLORIDE
     Dosage: UNK
     Dates: start: 1999
  7. RIVOTRIL [Concomitant]
     Active Substance: CLONAZEPAM
     Dosage: STRENGTH 2MG, UNK
     Dates: start: 1999
  8. CELEBRA [Suspect]
     Active Substance: CELECOXIB
     Indication: ANTIINFLAMMATORY THERAPY
     Dosage: 200 MG, DAILY
     Route: 048
     Dates: start: 1997
  9. CELEBRA [Suspect]
     Active Substance: CELECOXIB
     Indication: BACK PAIN
  10. DEPURA [Concomitant]
     Active Substance: CHOLECALCIFEROL
     Dosage: 50 GTT, 50 DROPS ONCE A WEEK
     Dates: start: 2014
  11. FORFIG [Concomitant]
     Indication: HEPATIC STEATOSIS
     Dosage: UNK
     Dates: start: 201506
  12. NEXIUM [Concomitant]
     Active Substance: ESOMEPRAZOLE MAGNESIUM
     Dosage: 1 TABLET, FASTING

REACTIONS (5)
  - Tendonitis [Unknown]
  - Bone lesion [Recovering/Resolving]
  - Fall [Unknown]
  - Back disorder [Unknown]
  - Bone fissure [Recovering/Resolving]

NARRATIVE: CASE EVENT DATE: 20150611
